FAERS Safety Report 7560791-8 (Version None)
Quarter: 2011Q2

REPORT INFORMATION
  Report Type: 
  Country: None (occurrence: None)
  Receive Date: 20110525
  Receipt Date: 20110314
  Transmission Date: 20111010
  Serious: No
  Sender: FDA-Public Use
  Company Number: 325010

PATIENT
  Age: 57 Year
  Sex: Female

DRUGS (1)
  1. VICTOZA [Suspect]
     Indication: TYPE 2 DIABETES MELLITUS
     Dosage: SUBCUTANEOUS
     Route: 058
     Dates: start: 20110321

REACTIONS (5)
  - ERUCTATION [None]
  - ABDOMINAL DISTENSION [None]
  - THERAPEUTIC RESPONSE UNEXPECTED [None]
  - CONSTIPATION [None]
  - DECREASED APPETITE [None]
